FAERS Safety Report 16822246 (Version 3)
Quarter: 2020Q1

REPORT INFORMATION
  Report Type: Spontaneous
  Country: US (occurrence: US)
  Receive Date: 20190918
  Receipt Date: 20200202
  Transmission Date: 20200409
  Serious: No
  Sender: FDA-Public Use
  Company Number: US-AMGEN-USASP2019150264

PATIENT
  Sex: Male

DRUGS (2)
  1. REPATHA [Suspect]
     Active Substance: EVOLOCUMAB
     Dosage: UNK, Q2WK
     Route: 065
     Dates: start: 20190801
  2. REPATHA [Suspect]
     Active Substance: EVOLOCUMAB
     Indication: PRODUCT USED FOR UNKNOWN INDICATION
     Dosage: 140 MILLIGRAM
     Route: 065
     Dates: start: 2019

REACTIONS (5)
  - Myalgia [Unknown]
  - Gait disturbance [Unknown]
  - Injection site pain [Unknown]
  - Muscular weakness [Unknown]
  - Pain in extremity [Unknown]

NARRATIVE: CASE EVENT DATE: 2019
